FAERS Safety Report 7008691-6 (Version None)
Quarter: 2010Q3

REPORT INFORMATION
  Report Type: 
  Country: None (occurrence: None)
  Receive Date: 20100922
  Receipt Date: 20100917
  Transmission Date: 20110219
  Serious: Yes (Hospitalization)
  Sender: FDA-Public Use
  Company Number: FR-MERCK-1009FRA00065

PATIENT
  Age: 93 Year
  Sex: Male

DRUGS (6)
  1. COZAAR [Suspect]
     Indication: HYPERTENSION
     Route: 048
     Dates: start: 20090101, end: 20100608
  2. FUROSEMIDE [Suspect]
     Route: 048
     Dates: end: 20100604
  3. CALCIUM CARBONATE AND CHOLECALCIFEROL [Concomitant]
     Route: 048
     Dates: start: 20090101
  4. GALANTAMINE HYDROBROMIDE [Concomitant]
     Route: 048
     Dates: start: 20090101
  5. BENSERAZIDE HYDROCHLORIDE AND LEVODOPA [Concomitant]
     Route: 048
     Dates: start: 20090101
  6. ACETAMINOPHEN [Concomitant]
     Route: 048
     Dates: start: 20090101

REACTIONS (3)
  - DEHYDRATION [None]
  - HYPOTENSION [None]
  - RENAL FAILURE ACUTE [None]
